FAERS Safety Report 21148603 (Version 1)
Quarter: 2022Q3

REPORT INFORMATION
  Report Type: Report from Study
  Country: CA (occurrence: CA)
  Receive Date: 20220729
  Receipt Date: 20220729
  Transmission Date: 20221027
  Serious: Yes (Other)
  Sender: FDA-Public Use
  Company Number: CA-PFIZER INC-202201011009

PATIENT
  Age: 63 Year
  Sex: Female

DRUGS (14)
  1. METHOTREXATE SODIUM [Suspect]
     Active Substance: METHOTREXATE SODIUM
     Dosage: UNK
     Route: 065
  2. METHOTREXATE SODIUM [Suspect]
     Active Substance: METHOTREXATE SODIUM
     Dosage: UNK
     Route: 058
  3. FOLIC ACID [Suspect]
     Active Substance: FOLIC ACID
     Dosage: 5 MG, 1X/DAY
     Route: 048
  4. LEFLUNOMIDE [Suspect]
     Active Substance: LEFLUNOMIDE
     Dosage: 10 MG, 1X/DAY
     Route: 065
  5. LEFLUNOMIDE [Suspect]
     Active Substance: LEFLUNOMIDE
     Dosage: 20 MG
     Route: 048
  6. SIMPONI [Suspect]
     Active Substance: GOLIMUMAB
     Dosage: 1 MG, MONTHLY
     Route: 058
  7. SIMPONI [Suspect]
     Active Substance: GOLIMUMAB
     Dosage: 50 MG, MONTHLY
     Route: 065
  8. ALENDRONATE SODIUM\CHOLECALCIFEROL [Concomitant]
     Active Substance: ALENDRONATE SODIUM\CHOLECALCIFEROL
     Dosage: UNK
     Route: 065
  9. ENBREL [Concomitant]
     Active Substance: ETANERCEPT
     Dosage: UNK
     Route: 065
  10. ERGOCALCIFEROL [Concomitant]
     Active Substance: ERGOCALCIFEROL
     Dosage: UNK
     Route: 065
  11. ESOMEPRAZOLE MAGNESIUM\NAPROXEN [Concomitant]
     Active Substance: ESOMEPRAZOLE MAGNESIUM\NAPROXEN
     Dosage: 1 MG
     Route: 048
  12. HUMIRA [Concomitant]
     Active Substance: ADALIMUMAB
     Dosage: UNK
     Route: 065
  13. SULFASALAZINE [Concomitant]
     Active Substance: SULFASALAZINE
     Dosage: UNK
     Route: 065
  14. VITAMINS NOS [Concomitant]
     Active Substance: VITAMINS
     Dosage: UNK
     Route: 065

REACTIONS (20)
  - Alopecia [Unknown]
  - Arthritis [Unknown]
  - Back pain [Unknown]
  - Blood cholesterol [Unknown]
  - Bone density decreased [Unknown]
  - Dizziness [Unknown]
  - Dyspnoea [Unknown]
  - Hepatic enzyme increased [Unknown]
  - Joint dislocation [Unknown]
  - Joint effusion [Unknown]
  - Ligament rupture [Unknown]
  - Nausea [Unknown]
  - Osteoarthritis [Unknown]
  - Osteoporosis [Unknown]
  - Plantar fasciitis [Unknown]
  - Psoriatic arthropathy [Unknown]
  - Red blood cell sedimentation rate increased [Unknown]
  - Rotator cuff syndrome [Unknown]
  - Tendonitis [Unknown]
  - Tuberculosis [Unknown]
